FAERS Safety Report 8973299 (Version 2)
Quarter: 2013Q1

REPORT INFORMATION
  Report Type: Spontaneous
  Country: US (occurrence: US)
  Receive Date: 20121219
  Receipt Date: 20130215
  Transmission Date: 20140127
  Serious: Yes (Hospitalization)
  Sender: FDA-Public Use
  Company Number: US-GENZYME-FABR-1002913

PATIENT
  Sex: Male

DRUGS (1)
  1. FABRAZYME [Suspect]
     Indication: FABRY^S DISEASE
     Dosage: 80 MG, Q2W
     Route: 042
     Dates: start: 200404

REACTIONS (1)
  - Cardiac disorder [Unknown]
